FAERS Safety Report 5378242-0 (Version None)
Quarter: 2007Q3

REPORT INFORMATION
  Report Type: 
  Country: None (occurrence: None)
  Receive Date: 20070702
  Receipt Date: 20070614
  Transmission Date: 20080115
  Serious: Yes (Hospitalization)
  Sender: FDA-Public Use
  Company Number: DSJ-2007-03333

PATIENT
  Sex: Male
  Weight: 79.7 kg

DRUGS (6)
  1. OLMETEC [Suspect]
     Indication: HYPERTENSION
     Dosage: 20 MG (20 MG, 1 IN 1 D), PER ORAL
     Route: 048
     Dates: start: 20060210, end: 20070329
  2. AMLODIN   (AMLODIPINE BESILATE) (TABLET) (AMLODIPINE BESILATE) [Suspect]
     Indication: HYPERTENSION
     Dosage: 5 MG (5 MG, 1 IN 1 D), PER ORAL
     Route: 048
     Dates: start: 20070205
  3. ISOCLINE   (CLOTIAZEPAM) (CLOTIAZEPAM) [Suspect]
     Dosage: 15 MG, PER ORAL
     Route: 048
     Dates: start: 19950227, end: 20070329
  4. DIBETOS B   (BUFORMIN HYDROCHLORIDE) (TABLET) (BUFORMIN HYDROCHLORIDE) [Suspect]
     Indication: DIABETES MELLITUS
     Dosage: 50 MG (50 MG, 1 IN 1 D), PER ORAL
     Route: 048
     Dates: start: 19951012, end: 20070329
  5. AMARYL [Suspect]
     Indication: DIABETES MELLITUS
     Dosage: 8 MG (4 MG, 2 IN  1 D), PER ORAL
     Route: 048
     Dates: start: 20020301, end: 20070329
  6. ACTOS [Suspect]
     Indication: DIABETES MELLITUS
     Dosage: 15 MG (15 MG, 1 IN 1 D), PER ORAL
     Route: 048
     Dates: start: 20040326, end: 20070329

REACTIONS (4)
  - ACUTE RESPIRATORY FAILURE [None]
  - BLOOD PRESSURE INADEQUATELY CONTROLLED [None]
  - DIABETES MELLITUS INADEQUATE CONTROL [None]
  - GLYCOSYLATED HAEMOGLOBIN INCREASED [None]
